FAERS Safety Report 7953153-2 (Version None)
Quarter: 2011Q4

REPORT INFORMATION
  Report Type: 
  Country: None (occurrence: None)
  Receive Date: 20111201
  Receipt Date: 20111127
  Transmission Date: 20120403
  Serious: Yes (Hospitalization)
  Sender: FDA-Public Use
  Company Number: JP-AMGEN-JPNSP2011063319

PATIENT
  Sex: Female

DRUGS (1)
  1. ENBREL [Suspect]
     Indication: PRODUCT USED FOR UNKNOWN INDICATION
     Dosage: 25 MG, WEEKLY
     Route: 058

REACTIONS (6)
  - ECZEMA [None]
  - FRACTURE [None]
  - HERPES ZOSTER [None]
  - ERYTHEMA [None]
  - SKIN EROSION [None]
  - PRURITUS [None]
